FAERS Safety Report 5968645-5 (Version None)
Quarter: 2008Q4

REPORT INFORMATION
  Report Type: 
  Country: None (occurrence: None)
  Receive Date: 20081126
  Receipt Date: 20081120
  Transmission Date: 20090506
  Serious: Yes (Hospitalization, Disabling)
  Sender: FDA-Public Use
  Company Number: CA-ELI_LILLY_AND_COMPANY-CA200811005152

PATIENT
  Age: 60 Year
  Sex: Female

DRUGS (12)
  1. FORTEO [Suspect]
     Indication: OSTEOPOROSIS
     Dosage: 20 UG, DAILY (1/D)
     Route: 067
     Dates: start: 20080529
  2. OXYCONTIN [Concomitant]
  3. GABAPENTIN [Concomitant]
  4. METHOTREXATE [Concomitant]
  5. PREDNISONE TAB [Concomitant]
  6. CELEBREX [Concomitant]
  7. PLAQUENIL [Concomitant]
  8. NEXIUM [Concomitant]
  9. NORVASC [Concomitant]
  10. VITAMIN E /001105/ [Concomitant]
  11. FOLIC ACID [Concomitant]
  12. CALCIUM W/VITAMIN D NOS [Concomitant]

REACTIONS (5)
  - ANKLE FRACTURE [None]
  - FALL [None]
  - MOBILITY DECREASED [None]
  - SPINAL COLUMN STENOSIS [None]
  - TIBIA FRACTURE [None]
